FAERS Safety Report 18926809 (Version 13)
Quarter: 2021Q4

REPORT INFORMATION
  Report Type: Report from Study
  Country: JP (occurrence: JP)
  Receive Date: 20210223
  Receipt Date: 20211122
  Transmission Date: 20220303
  Serious: Yes (Death, Hospitalization)
  Sender: FDA-Public Use
  Company Number: NVSC2021JP035151

PATIENT
  Age: 72 Year
  Sex: Male
  Weight: 59.1 kg

DRUGS (97)
  1. KYMRIAH [Suspect]
     Active Substance: TISAGENLECLEUCEL
     Indication: Follicular lymphoma
     Dosage: 1.1214X10E8, CELLS
     Route: 042
     Dates: start: 20200210
  2. INSULIN HUMAN [Concomitant]
     Active Substance: INSULIN HUMAN
     Indication: Hyperglycaemia
     Dosage: UNK
     Route: 065
     Dates: start: 20210103, end: 20210129
  3. INSULIN HUMAN [Concomitant]
     Active Substance: INSULIN HUMAN
     Indication: Prophylaxis
     Dosage: UNK
     Route: 065
     Dates: start: 20210129
  4. INSULIN HUMAN [Concomitant]
     Active Substance: INSULIN HUMAN
     Dosage: UNK
     Route: 065
     Dates: start: 20210202, end: 20210202
  5. INSULIN HUMAN [Concomitant]
     Active Substance: INSULIN HUMAN
     Dosage: UNK
     Route: 065
     Dates: start: 20210204, end: 20210204
  6. INSULIN HUMAN [Concomitant]
     Active Substance: INSULIN HUMAN
     Dosage: UNK
     Route: 065
     Dates: start: 20210205, end: 20210206
  7. INSULIN HUMAN [Concomitant]
     Active Substance: INSULIN HUMAN
     Dosage: UNK
     Route: 065
     Dates: start: 20210207, end: 20210212
  8. INSULIN HUMAN [Concomitant]
     Active Substance: INSULIN HUMAN
     Dosage: UNK
     Route: 065
     Dates: start: 20210213
  9. ALBUMIN HUMAN [Concomitant]
     Active Substance: ALBUMIN HUMAN
     Indication: Hypoalbuminaemia
     Dosage: 25 %
     Route: 065
     Dates: start: 20210124, end: 20210124
  10. ALBUMIN HUMAN [Concomitant]
     Active Substance: ALBUMIN HUMAN
     Dosage: 25 %
     Route: 065
     Dates: start: 20210202, end: 20210208
  11. ALBUMIN HUMAN [Concomitant]
     Active Substance: ALBUMIN HUMAN
     Dosage: 25 %
     Route: 065
     Dates: start: 20210210, end: 20210210
  12. ALBUMIN HUMAN [Concomitant]
     Active Substance: ALBUMIN HUMAN
     Dosage: 25 %
     Route: 065
     Dates: start: 20210212, end: 20210212
  13. ALBUMIN HUMAN [Concomitant]
     Active Substance: ALBUMIN HUMAN
     Dosage: 25 %
     Route: 065
     Dates: start: 20210214, end: 20210214
  14. ALBUMIN HUMAN [Concomitant]
     Active Substance: ALBUMIN HUMAN
     Dosage: 25 %
     Route: 065
     Dates: start: 20210215, end: 20210215
  15. ALBUMIN HUMAN [Concomitant]
     Active Substance: ALBUMIN HUMAN
     Dosage: 5 %
     Route: 065
     Dates: start: 20210217, end: 20210217
  16. ALBUMIN HUMAN [Concomitant]
     Active Substance: ALBUMIN HUMAN
     Dosage: 5 %
     Route: 065
     Dates: start: 20210217, end: 20210217
  17. SODIUM BICARBONATE [Concomitant]
     Active Substance: SODIUM BICARBONATE
     Indication: Acute kidney injury
     Dosage: UNK
     Route: 065
     Dates: start: 20200731, end: 20210204
  18. SODIUM BICARBONATE [Concomitant]
     Active Substance: SODIUM BICARBONATE
     Indication: Stomatitis
     Dosage: UNK
     Route: 065
     Dates: start: 20210215, end: 20210215
  19. FILGRASTIM [Concomitant]
     Active Substance: FILGRASTIM
     Indication: Neutropenia
     Dosage: UNK
     Route: 065
     Dates: start: 20201128
  20. MAGNESIUM SULFATE [Concomitant]
     Active Substance: MAGNESIUM SULFATE
     Indication: Hypomagnesaemia
     Dosage: UNK
     Route: 065
     Dates: start: 20201224, end: 20210131
  21. MAGNESIUM SULFATE [Concomitant]
     Active Substance: MAGNESIUM SULFATE
     Dosage: UNK
     Route: 065
     Dates: start: 20210120, end: 20210129
  22. MAGNESIUM SULFATE [Concomitant]
     Active Substance: MAGNESIUM SULFATE
     Dosage: UNK
     Route: 065
     Dates: start: 20210131, end: 20210131
  23. MAGNESIUM SULFATE [Concomitant]
     Active Substance: MAGNESIUM SULFATE
     Dosage: UNK
     Route: 065
     Dates: start: 20210216, end: 20210216
  24. TEICOPLANIN [Concomitant]
     Active Substance: TEICOPLANIN
     Indication: Stomatitis
     Dosage: UNK
     Route: 065
     Dates: start: 20210120, end: 20210122
  25. TEICOPLANIN [Concomitant]
     Active Substance: TEICOPLANIN
     Indication: Pneumonia
     Dosage: UNK
     Route: 065
     Dates: start: 20210123, end: 20210202
  26. TEICOPLANIN [Concomitant]
     Active Substance: TEICOPLANIN
     Indication: Sepsis
     Dosage: UNK
     Route: 065
     Dates: start: 20210204, end: 20210205
  27. TEICOPLANIN [Concomitant]
     Active Substance: TEICOPLANIN
     Dosage: UNK
     Route: 065
     Dates: start: 20210207, end: 20210207
  28. TEICOPLANIN [Concomitant]
     Active Substance: TEICOPLANIN
     Dosage: UNK
     Route: 065
     Dates: start: 20210208, end: 20210210
  29. TEICOPLANIN [Concomitant]
     Active Substance: TEICOPLANIN
     Dosage: UNK
     Route: 065
     Dates: start: 20210212, end: 20210212
  30. TEICOPLANIN [Concomitant]
     Active Substance: TEICOPLANIN
     Dosage: UNK
     Route: 065
     Dates: start: 20210215
  31. AMINO ACIDS\DEXTROSE\ELECTROLYTES NOS\MINERALS\VITAMINS [Concomitant]
     Active Substance: AMINO ACIDS\DEXTROSE\ELECTROLYTES NOS\MINERALS\VITAMINS
     Indication: Weight decreased
     Dosage: UNK
     Route: 065
     Dates: start: 20210103, end: 20210129
  32. NOREPINEPHRINE [Concomitant]
     Active Substance: NOREPINEPHRINE
     Indication: Sepsis
     Dosage: UNK
     Route: 065
     Dates: start: 20210119, end: 20210121
  33. NOREPINEPHRINE [Concomitant]
     Active Substance: NOREPINEPHRINE
     Dosage: UNK
     Route: 065
     Dates: start: 20210214
  34. THROMBOMODULIN ALFA [Concomitant]
     Active Substance: THROMBOMODULIN ALFA
     Indication: Coagulopathy
     Dosage: UNK
     Route: 065
     Dates: start: 20210121, end: 20210202
  35. FUROSEMIDE [Concomitant]
     Active Substance: FUROSEMIDE
     Indication: Cardiovascular event prophylaxis
     Dosage: UNK
     Route: 065
     Dates: start: 20210116, end: 20210203
  36. HIZENTRA [Concomitant]
     Active Substance: HUMAN IMMUNOGLOBULIN G
     Indication: Hypogammaglobulinaemia
     Dosage: 20% 2G/10 ML
     Route: 058
     Dates: start: 20210104, end: 20210125
  37. PENTAMIDINE ISETHIONATE [Concomitant]
     Active Substance: PENTAMIDINE ISETHIONATE
     Indication: Antifungal prophylaxis
     Dosage: UNK
     Route: 065
     Dates: start: 20210126, end: 20210126
  38. DALTEPARIN SODIUM [Concomitant]
     Active Substance: DALTEPARIN SODIUM
     Indication: Coagulopathy
     Dosage: UNK
     Route: 065
     Dates: start: 20210203, end: 20210207
  39. DALTEPARIN SODIUM [Concomitant]
     Active Substance: DALTEPARIN SODIUM
     Dosage: UNK
     Route: 065
     Dates: start: 20210208, end: 20210208
  40. GABEXATE MESYLATE [Concomitant]
     Active Substance: GABEXATE MESYLATE
     Indication: Coagulopathy
     Dosage: UNK
     Route: 065
     Dates: start: 20210208, end: 20210210
  41. GABEXATE MESYLATE [Concomitant]
     Active Substance: GABEXATE MESYLATE
     Indication: Amylase increased
     Dosage: UNK
     Route: 065
     Dates: start: 20210208
  42. OMEPRAZOLE SODIUM [Concomitant]
     Active Substance: OMEPRAZOLE SODIUM
     Indication: Gastrointestinal ulcer
     Dosage: UNK
     Route: 065
     Dates: start: 20210208
  43. ACYCLOVIR [Concomitant]
     Active Substance: ACYCLOVIR
     Indication: Gastrointestinal ulcer
     Dosage: UNK
     Route: 065
     Dates: start: 20210208, end: 20210208
  44. ACYCLOVIR [Concomitant]
     Active Substance: ACYCLOVIR
     Dosage: UNK
     Route: 065
     Dates: start: 20210209, end: 20210212
  45. ACYCLOVIR [Concomitant]
     Active Substance: ACYCLOVIR
     Dosage: UNK
     Route: 065
     Dates: start: 20210215
  46. LEVOFLOXACIN HEMIHYDRATE [Concomitant]
     Active Substance: LEVOFLOXACIN
     Indication: Pneumonia
     Dosage: UNK
     Route: 065
     Dates: start: 20210116, end: 20210203
  47. LEVOFLOXACIN HEMIHYDRATE [Concomitant]
     Active Substance: LEVOFLOXACIN
     Dosage: UNK
     Route: 065
     Dates: start: 20210204
  48. MEROPENEM [Concomitant]
     Active Substance: MEROPENEM
     Indication: Pneumonia
     Dosage: UNK
     Route: 065
     Dates: start: 20201223
  49. MEROPENEM [Concomitant]
     Active Substance: MEROPENEM
     Dosage: UNK
     Route: 065
     Dates: start: 20210103, end: 20210209
  50. MEROPENEM [Concomitant]
     Active Substance: MEROPENEM
     Dosage: UNK
     Route: 065
     Dates: start: 20210210
  51. SOLDEM 3A [Concomitant]
     Active Substance: CARBOHYDRATES\POTASSIUM CHLORIDE\SODIUM CHLORIDE\SODIUM LACTATE
     Indication: Renal disorder prophylaxis
     Dosage: UNK
     Route: 065
     Dates: start: 20210114, end: 20210125
  52. SOLDEM 3A [Concomitant]
     Active Substance: CARBOHYDRATES\POTASSIUM CHLORIDE\SODIUM CHLORIDE\SODIUM LACTATE
     Dosage: UNK
     Route: 065
     Dates: start: 20210126, end: 20210129
  53. AMINO ACIDS\DEXTROSE\ELECTROLYTES NOS\MINERALS\VITAMINS [Concomitant]
     Active Substance: AMINO ACIDS\DEXTROSE\ELECTROLYTES NOS\MINERALS\VITAMINS
     Indication: Weight decreased
     Dosage: UNK
     Route: 065
     Dates: start: 20210202, end: 20210202
  54. DEXTROSE\SODIUM CHLORIDE\SODIUM LACTATE [Concomitant]
     Active Substance: DEXTROSE\SODIUM CHLORIDE\SODIUM LACTATE
     Indication: Renal disorder prophylaxis
     Dosage: UNK
     Route: 065
     Dates: start: 20210202, end: 20210202
  55. DEXTROSE\SODIUM CHLORIDE\SODIUM LACTATE [Concomitant]
     Active Substance: DEXTROSE\SODIUM CHLORIDE\SODIUM LACTATE
     Dosage: UNK
     Route: 065
     Dates: start: 20210203, end: 20210204
  56. DEXTROSE\SODIUM CHLORIDE\SODIUM LACTATE [Concomitant]
     Active Substance: DEXTROSE\SODIUM CHLORIDE\SODIUM LACTATE
     Dosage: UNK
     Route: 065
     Dates: start: 20210205, end: 20210208
  57. SODIUM CHLORIDE [Concomitant]
     Active Substance: SODIUM CHLORIDE
     Indication: Sepsis
     Dosage: UNK
     Route: 065
     Dates: start: 20210129, end: 20210129
  58. SODIUM CHLORIDE [Concomitant]
     Active Substance: SODIUM CHLORIDE
     Indication: Hypernatraemia
     Dosage: UNK
     Route: 065
     Dates: start: 20210130, end: 20210130
  59. SODIUM CHLORIDE [Concomitant]
     Active Substance: SODIUM CHLORIDE
     Dosage: UNK
     Route: 065
     Dates: start: 20210131, end: 20210131
  60. SODIUM CHLORIDE [Concomitant]
     Active Substance: SODIUM CHLORIDE
     Dosage: UNK
     Route: 065
     Dates: start: 20210201, end: 20210201
  61. SODIUM CHLORIDE [Concomitant]
     Active Substance: SODIUM CHLORIDE
     Dosage: UNK
     Route: 065
     Dates: start: 20210202, end: 20210202
  62. DEXTROSE [Concomitant]
     Active Substance: DEXTROSE
     Indication: Hypernatraemia
     Dosage: UNK
     Route: 065
     Dates: start: 20210129, end: 20210129
  63. DEXTROSE [Concomitant]
     Active Substance: DEXTROSE
     Indication: Weight decreased
     Dosage: UNK
     Route: 065
     Dates: start: 20210130, end: 20210130
  64. DEXTROSE [Concomitant]
     Active Substance: DEXTROSE
     Dosage: UNK
     Route: 065
     Dates: start: 20210131, end: 20210131
  65. DEXTROSE [Concomitant]
     Active Substance: DEXTROSE
     Dosage: UNK
     Route: 065
     Dates: start: 20210201, end: 20210201
  66. DEXTROSE [Concomitant]
     Active Substance: DEXTROSE
     Dosage: UNK
     Route: 065
     Dates: start: 20210202, end: 20210202
  67. DEXTROSE [Concomitant]
     Active Substance: DEXTROSE
     Dosage: UNK
     Route: 065
     Dates: start: 20210204
  68. DEXCHLORPHENIRAMINE MALEATE [Concomitant]
     Active Substance: DEXCHLORPHENIRAMINE MALEATE
     Indication: Prophylaxis
     Dosage: UNK
     Route: 065
     Dates: start: 20210108
  69. POTASSIUM CHLORIDE [Concomitant]
     Active Substance: POTASSIUM CHLORIDE
     Indication: Hypokalaemia
     Dosage: UNK
     Route: 065
     Dates: start: 20201127, end: 20210131
  70. POTASSIUM CHLORIDE [Concomitant]
     Active Substance: POTASSIUM CHLORIDE
     Dosage: UNK
     Route: 065
     Dates: start: 20210121, end: 20210121
  71. POTASSIUM CHLORIDE [Concomitant]
     Active Substance: POTASSIUM CHLORIDE
     Dosage: UNK
     Route: 065
     Dates: start: 20210122, end: 20210124
  72. POTASSIUM CHLORIDE [Concomitant]
     Active Substance: POTASSIUM CHLORIDE
     Dosage: UNK
     Route: 065
     Dates: start: 20210125, end: 20210129
  73. POTASSIUM CHLORIDE [Concomitant]
     Active Substance: POTASSIUM CHLORIDE
     Dosage: UNK
     Route: 065
     Dates: start: 20210131, end: 20210131
  74. VITAMINS [Concomitant]
     Active Substance: VITAMINS
     Indication: Weight decreased
     Dosage: UNK
     Route: 065
     Dates: start: 20210204
  75. CUPRIC SULFATE\FERRIC CHLORIDE\MANGANESE CHLORIDE\POTASSIUM IODIDE\ZIN [Concomitant]
     Active Substance: CUPRIC SULFATE\FERRIC CHLORIDE\MANGANESE CHLORIDE\POTASSIUM IODIDE\ZINC SULFATE
     Indication: Weight decreased
     Dosage: UNK
     Route: 065
     Dates: start: 20210204
  76. AMINO ACIDS\ELECTROLYTES NOS [Concomitant]
     Active Substance: AMINO ACIDS\ELECTROLYTES NOS
     Indication: Weight decreased
     Dosage: UNK
     Route: 065
     Dates: start: 20210204
  77. CALCIUM GLUCONATE [Concomitant]
     Active Substance: CALCIUM GLUCONATE
     Indication: Acute kidney injury
     Dosage: UNK
     Route: 065
     Dates: start: 20210205, end: 20210205
  78. ANTITHROMBIN GAMMA [Concomitant]
     Indication: Coagulopathy
     Dosage: UNK
     Route: 065
     Dates: start: 20210204, end: 20210209
  79. ANTITHROMBIN GAMMA [Concomitant]
     Dosage: UNK
     Route: 065
     Dates: start: 20210212, end: 20210214
  80. DEXAMETHASONE SODIUM PHOSPHATE [Concomitant]
     Active Substance: DEXAMETHASONE SODIUM PHOSPHATE
     Indication: Encephalopathy
     Dosage: UNK
     Route: 065
     Dates: start: 20210121, end: 20210122
  81. DEXAMETHASONE SODIUM PHOSPHATE [Concomitant]
     Active Substance: DEXAMETHASONE SODIUM PHOSPHATE
     Dosage: UNK
     Route: 065
     Dates: start: 20210123, end: 20210207
  82. DEXAMETHASONE SODIUM PHOSPHATE [Concomitant]
     Active Substance: DEXAMETHASONE SODIUM PHOSPHATE
     Dosage: UNK
     Route: 065
     Dates: start: 20210208, end: 20210214
  83. CYCLOSPORINE [Concomitant]
     Active Substance: CYCLOSPORINE
     Indication: Haemophagocytic lymphohistiocytosis
     Dosage: UNK
     Route: 065
     Dates: start: 20210213
  84. CYCLOSPORINE [Concomitant]
     Active Substance: CYCLOSPORINE
     Dosage: UNK
     Route: 065
     Dates: start: 20210213, end: 20210214
  85. CYCLOSPORINE [Concomitant]
     Active Substance: CYCLOSPORINE
     Dosage: UNK
     Route: 065
     Dates: start: 20210215, end: 20210215
  86. LANDIOLOL HYDROCHLORIDE [Concomitant]
     Active Substance: LANDIOLOL HYDROCHLORIDE
     Indication: Atrial fibrillation
     Dosage: UNK
     Route: 065
     Dates: start: 20210214, end: 20210214
  87. AMIODARONE HYDROCHLORIDE [Concomitant]
     Active Substance: AMIODARONE HYDROCHLORIDE
     Indication: Atrial fibrillation
     Dosage: UNK
     Route: 065
     Dates: start: 20210217, end: 20210217
  88. VASOPRESSIN [Concomitant]
     Active Substance: VASOPRESSIN
     Indication: Hypotension
     Dosage: UNK
     Route: 065
     Dates: start: 20210217, end: 20210217
  89. CHONDROITIN SULFATE (BOVINE) [Concomitant]
     Active Substance: CHONDROITIN SULFATE (BOVINE)
     Indication: Dry skin
     Dosage: UNK
     Route: 065
     Dates: start: 20210107
  90. CHONDROITIN SULFATE (BOVINE) [Concomitant]
     Active Substance: CHONDROITIN SULFATE (BOVINE)
     Dosage: UNK
     Route: 065
     Dates: start: 20210126
  91. WHITE PETROLATUM [Concomitant]
     Active Substance: PETROLATUM
     Indication: Dry skin
     Dosage: UNK
     Route: 065
     Dates: start: 20210116
  92. ZINC OXIDE [Concomitant]
     Active Substance: ZINC OXIDE
     Indication: Skin ulcer
     Dosage: UNK
     Route: 065
     Dates: start: 20210206
  93. FLUDARABINE PHOSPHATE [Concomitant]
     Active Substance: FLUDARABINE PHOSPHATE
     Indication: Chemotherapy
     Dosage: UNK
     Route: 065
     Dates: start: 20200206, end: 20200208
  94. CYCLOPHOSPHAMIDE [Concomitant]
     Active Substance: CYCLOPHOSPHAMIDE
     Indication: Chemotherapy
     Dosage: UNK
     Route: 065
     Dates: start: 20200206, end: 20200208
  95. CASPOFUNGIN ACETATE [Concomitant]
     Active Substance: CASPOFUNGIN ACETATE
     Indication: Pneumonia
     Dosage: UNK
     Route: 065
     Dates: start: 20210121, end: 20210122
  96. CASPOFUNGIN ACETATE [Concomitant]
     Active Substance: CASPOFUNGIN ACETATE
     Dosage: UNK
     Route: 065
     Dates: start: 20210203, end: 20210203
  97. CASPOFUNGIN ACETATE [Concomitant]
     Active Substance: CASPOFUNGIN ACETATE
     Dosage: UNK
     Route: 065
     Dates: start: 20210204

REACTIONS (1)
  - Cytokine release syndrome [Fatal]

NARRATIVE: CASE EVENT DATE: 20210211
